FAERS Safety Report 4626018-1 (Version None)
Quarter: 2005Q2

REPORT INFORMATION
  Report Type: 
  Country: None (occurrence: None)
  Receive Date: 20050404
  Receipt Date: 20050324
  Transmission Date: 20051028
  Serious: Yes (Hospitalization)
  Sender: FDA-Public Use
  Company Number: CH-JNJFOC-20050306091

PATIENT
  Age: 57 Year
  Sex: Female
  Weight: 68 kg

DRUGS (5)
  1. DURAGESIC-100 [Suspect]
     Route: 062
  2. MORPHINE [Suspect]
     Route: 049
  3. IRESSA [Concomitant]
     Route: 049
  4. DAFALGAN [Concomitant]
     Route: 049
  5. TRAMAL [Concomitant]
     Route: 049

REACTIONS (4)
  - DYSPNOEA [None]
  - PNEUMONIA [None]
  - SEDATION [None]
  - SEPSIS [None]
